FAERS Safety Report 17174331 (Version 2)
Quarter: 2021Q2

REPORT INFORMATION
  Report Type: Spontaneous
  Country: AT (occurrence: AT)
  Receive Date: 20191219
  Receipt Date: 20210517
  Transmission Date: 20210716
  Serious: Yes (Hospitalization, Other)
  Sender: FDA-Public Use
  Company Number: AT-IPCA LABORATORIES LIMITED-IPC-2019-AT-002272

PATIENT

DRUGS (4)
  1. HYDROCHLOROTHIAZIDE. [Suspect]
     Active Substance: HYDROCHLOROTHIAZIDE
     Indication: PRODUCT USED FOR UNKNOWN INDICATION
     Dosage: 87.5 MILLIGRAM, HOSPITAL DAY ?1
     Route: 065
  2. TRIAMTERENE. [Suspect]
     Active Substance: TRIAMTERENE
     Indication: PRODUCT USED FOR UNKNOWN INDICATION
     Dosage: 175 MILLIGRAM, HOSPITAL DAY ?1
     Route: 065
  3. TRIAMTERENE. [Suspect]
     Active Substance: TRIAMTERENE
     Dosage: 25 MILLIGRAM,HOSPITAL DAY +1
     Route: 065
  4. HYDROCHLOROTHIAZIDE. [Suspect]
     Active Substance: HYDROCHLOROTHIAZIDE
     Dosage: 12.5 MILLIGRAM, HOSPITAL DAY ?1
     Route: 065

REACTIONS (11)
  - Urinary retention [Recovered/Resolved]
  - Electrocardiogram QT prolonged [Recovered/Resolved]
  - Intentional product misuse [Unknown]
  - Paralysis [Recovered/Resolved]
  - Muscle spasms [Recovered/Resolved]
  - Hyperglycaemia [Recovered/Resolved]
  - Bladder dysfunction [Recovered/Resolved]
  - Asthenia [Recovered/Resolved]
  - Hypokalaemia [Recovered/Resolved]
  - Sensory disturbance [Recovered/Resolved]
  - Quadriparesis [Recovered/Resolved]
